FAERS Safety Report 5746585-4 (Version None)
Quarter: 2008Q2

REPORT INFORMATION
  Report Type: 
  Country: None (occurrence: None)
  Receive Date: 20080520
  Receipt Date: 20080520
  Transmission Date: 20081010
  Serious: Yes (Other)
  Sender: FDA-Public Use
  Company Number: None

PATIENT

DRUGS (1)
  1. MORPHINE 2MG INJ [Suspect]
     Indication: PAIN
     Dosage: 2MG IV
     Route: 042
     Dates: start: 20080519

REACTIONS (4)
  - ABDOMINAL PAIN UPPER [None]
  - CHEST PAIN [None]
  - ERYTHEMA [None]
  - URTICARIA [None]
